FAERS Safety Report 19586131 (Version 1)
Quarter: 2021Q3

REPORT INFORMATION
  Report Type: Spontaneous
  Country: US (occurrence: US)
  Receive Date: 20210721
  Receipt Date: 20210721
  Transmission Date: 20211014
  Serious: Yes (Other)
  Sender: FDA-Public Use
  Company Number: US-AMGEN-USASP2021110474

PATIENT
  Age: 70 Year
  Sex: Female

DRUGS (6)
  1. GEMZAR [Concomitant]
     Active Substance: GEMCITABINE HYDROCHLORIDE
     Indication: OVARIAN CANCER
     Dosage: UNK
     Dates: start: 202002
  2. PERJETA [Concomitant]
     Active Substance: PERTUZUMAB
     Indication: OVARIAN CANCER
     Dosage: UNK
     Dates: start: 202002
  3. KANJINTI [Suspect]
     Active Substance: TRASTUZUMAB-ANNS
     Indication: OFF LABEL USE
     Dosage: 740 MILLIGRAM, Q3WK
     Route: 065
     Dates: start: 20210614
  4. CARBOPLATIN. [Concomitant]
     Active Substance: CARBOPLATIN
     Indication: OVARIAN CANCER
     Dosage: UNK
     Dates: start: 202002
  5. KANJINTI [Suspect]
     Active Substance: TRASTUZUMAB-ANNS
     Indication: OVARIAN CANCER
     Dosage: 740 MILLIGRAM, Q3WK
     Route: 065
     Dates: start: 202002
  6. KANJINTI [Suspect]
     Active Substance: TRASTUZUMAB-ANNS
     Dosage: 740 MILLIGRAM, Q3WK
     Route: 065
     Dates: start: 20210712

REACTIONS (2)
  - Pancytopenia [Recovered/Resolved]
  - Off label use [Unknown]

NARRATIVE: CASE EVENT DATE: 202002
